FAERS Safety Report 22750451 (Version 4)
Quarter: 2024Q1

REPORT INFORMATION
  Report Type: Spontaneous
  Country: PK (occurrence: PK)
  Receive Date: 20230726
  Receipt Date: 20240130
  Transmission Date: 20240410
  Serious: Yes (Other)
  Sender: FDA-Public Use
  Company Number: PK-PFIZER INC-PV202300126472

PATIENT
  Age: 61 Year
  Sex: Male

DRUGS (7)
  1. ENBREL [Suspect]
     Active Substance: ETANERCEPT
     Indication: Psoriatic arthropathy
     Dosage: UNK
     Route: 065
     Dates: start: 2010, end: 2022
  2. ENBREL [Suspect]
     Active Substance: ETANERCEPT
     Dosage: 50 MILLIGRAM, QWK
     Route: 058
  3. DICLOFENAC SODIUM [Concomitant]
     Active Substance: DICLOFENAC\DICLOFENAC SODIUM
     Dosage: EMULGEL GEL 20, APPLY LOCALLY, THREE TIMES A DAY
     Route: 065
  4. HIGH C [Concomitant]
     Dosage: HIGH-C 1000 POWD 1 X SACHETS, ONCE A DAY, AFTER MEAL
     Route: 065
  5. Sunny d [Concomitant]
     Dosage: SUNNY D 200,000 CAP 1 X CAPSULES, ONCE IN TWO MONTHS
     Route: 065
  6. NUBEROL [Concomitant]
     Dosage: 0 + 0 + 1 + 0, AFTER MEAL, 1 TAB IN EVENING AFTER MEAL
     Route: 065
  7. PREVNAR 13 [Concomitant]
     Active Substance: PNEUMOCOCCAL 13-VALENT CONJUGATE VACCINE
     Dosage: PREVENAR 13 IM,1 X INJ ( IM ), STAT FOR 1 DAYS. PNEUMONIA VACCINE. ONCE EVERY 5 YEARS.
     Route: 030

REACTIONS (11)
  - Diabetes mellitus inadequate control [Unknown]
  - Renal failure [Unknown]
  - Body mass index increased [Unknown]
  - Gait disturbance [Unknown]
  - Balance disorder [Unknown]
  - Blood pressure inadequately controlled [Unknown]
  - Hypophagia [Unknown]
  - Haemoglobin decreased [Unknown]
  - Blood uric acid increased [Unknown]
  - Osteoporosis [Unknown]
  - Intentional product misuse [Unknown]

NARRATIVE: CASE EVENT DATE: 20230627
